FAERS Safety Report 7467850-9 (Version None)
Quarter: 2011Q2

REPORT INFORMATION
  Report Type: 
  Country: None (occurrence: None)
  Receive Date: 20110505
  Receipt Date: 20110505
  Transmission Date: 20111010
  Serious: Yes (Life-Threatening, Other)
  Sender: FDA-Public Use
  Company Number: None

PATIENT
  Age: 67 Year
  Weight: 83.0083 kg

DRUGS (2)
  1. WARFARIN SODIUM [Concomitant]
  2. WARFARIN SODIUM [Suspect]
     Indication: THROMBOSIS PROPHYLAXIS
     Dosage: ONE -1- TABLET DAILY PO
     Route: 048
     Dates: start: 20090621, end: 20110503

REACTIONS (3)
  - INTERNATIONAL NORMALISED RATIO INCREASED [None]
  - EYE HAEMORRHAGE [None]
  - EYELID OEDEMA [None]
